FAERS Safety Report 12530503 (Version 1)
Quarter: 2016Q3

REPORT INFORMATION
  Report Type: Spontaneous
  Country: AT (occurrence: AT)
  Receive Date: 20160706
  Receipt Date: 20160706
  Transmission Date: 20161109
  Serious: Yes (Other)
  Sender: FDA-Public Use
  Company Number: AT-GLAXOSMITHKLINE-AT2016095289

PATIENT
  Age: 45 Year
  Sex: Female
  Weight: 50 kg

DRUGS (2)
  1. NICORETTE [Suspect]
     Active Substance: NICOTINE
     Indication: PRODUCT USED FOR UNKNOWN INDICATION
     Dosage: 4 MG, TID
     Route: 048
     Dates: start: 20160303, end: 2016
  2. NICORETTE [Suspect]
     Active Substance: NICOTINE
     Dosage: UNK
     Route: 048
     Dates: end: 2016

REACTIONS (8)
  - Nicotine dependence [Recovered/Resolved]
  - Headache [Recovered/Resolved]
  - Hyperkeratosis [Recovered/Resolved]
  - Acute sinusitis [Recovered/Resolved]
  - Tinnitus [Recovered/Resolved]
  - Pain [Recovered/Resolved]
  - Joint dislocation [Recovered/Resolved]
  - Ear pain [Recovered/Resolved]

NARRATIVE: CASE EVENT DATE: 2016
